FAERS Safety Report 7375435-8 (Version None)
Quarter: 2011Q1

REPORT INFORMATION
  Report Type: 
  Country: None (occurrence: None)
  Receive Date: 20110325
  Receipt Date: 20110301
  Transmission Date: 20110831
  Serious: No
  Sender: FDA-Public Use
  Company Number: US-B.I. PHARMACEUTICALS,INC./RIDGEFIELD-2011-BP-03835BP

PATIENT
  Sex: Female

DRUGS (9)
  1. PRADAXA [Suspect]
     Indication: ATRIAL FIBRILLATION
     Dosage: 300 MG
     Route: 048
     Dates: start: 20110201
  2. SINGULAIR [Concomitant]
     Indication: ASTHMA
  3. ADVAIR DISKUS 100/50 [Concomitant]
     Indication: ASTHMA
  4. ACTOS [Concomitant]
     Indication: DIABETES MELLITUS
  5. CARDIZEM [Concomitant]
     Indication: HYPERTENSION
  6. NORVASC [Concomitant]
     Indication: HYPERTENSION
  7. EVISTA [Concomitant]
     Indication: OSTEOPOROSIS
  8. TENORMIN [Concomitant]
     Indication: ATRIAL FIBRILLATION
  9. GLUCOTROL [Concomitant]
     Indication: DIABETES MELLITUS

REACTIONS (6)
  - PRURITUS GENERALISED [None]
  - BLOOD BLISTER [None]
  - MUSCULOSKELETAL PAIN [None]
  - MUSCULOSKELETAL DISCOMFORT [None]
  - DIZZINESS [None]
  - BACK PAIN [None]
